FAERS Safety Report 7323379-X (Version None)
Quarter: 2011Q1

REPORT INFORMATION
  Report Type: 
  Country: None (occurrence: None)
  Receive Date: 20110301
  Receipt Date: 20110218
  Transmission Date: 20110831
  Serious: Yes (Other)
  Sender: FDA-Public Use
  Company Number: GB-JNJFOC-20110206116

PATIENT
  Sex: Female

DRUGS (2)
  1. LISTERINE [Suspect]
     Indication: DENTAL DISORDER PROPHYLAXIS
     Route: 048
  2. LISTERINE FRESHBURST [Suspect]
     Indication: PRODUCT USED FOR UNKNOWN INDICATION
     Route: 048

REACTIONS (1)
  - GINGIVAL ATROPHY [None]
